FAERS Safety Report 12276861 (Version 1)
Quarter: 2016Q2

REPORT INFORMATION
  Report Type: Spontaneous
  Country: US (occurrence: None)
  Receive Date: 20160415
  Receipt Date: 20160415
  Transmission Date: 20160815
  Serious: Yes (Other)
  Sender: FDA-Public Use
  Company Number: None

PATIENT
  Age: 72 Year
  Sex: Female
  Weight: 72.58 kg

DRUGS (9)
  1. DAWN DISHWASHING DETERGENT (DAWN ULTRA) (ACTIVE INGREDIENT TRICLOSAN) [Suspect]
     Active Substance: TRICLOSAN
     Dosage: 10-15 ML 2X DAILY SKIN CONTACT
     Route: 061
     Dates: start: 2012, end: 20160301
  2. CALCIUM SUPPLEMENT [Concomitant]
     Active Substance: CALCIUM
  3. FOLIC ACID. [Concomitant]
     Active Substance: FOLIC ACID
  4. DAILY VITAMIN [Concomitant]
     Active Substance: VITAMINS
  5. METHOTREXATE [Concomitant]
     Active Substance: METHOTREXATE
  6. CRESTOR [Concomitant]
     Active Substance: ROSUVASTATIN CALCIUM
  7. LIPERSOL [Concomitant]
  8. EXTRA V.D+E [Concomitant]
  9. OMEGA FISH OIL [Concomitant]
     Active Substance: FISH OIL\OMEGA-3 FATTY ACIDS

REACTIONS (6)
  - Product quality issue [None]
  - Skin fissures [None]
  - Documented hypersensitivity to administered product [None]
  - Physical product label issue [None]
  - Pain [None]
  - Rash [None]

NARRATIVE: CASE EVENT DATE: 2013
